FAERS Safety Report 10955624 (Version 2)
Quarter: 2017Q3

REPORT INFORMATION
  Report Type: Spontaneous
  Country: EG (occurrence: EG)
  Receive Date: 20150326
  Receipt Date: 20170914
  Transmission Date: 20171127
  Serious: Yes (Other)
  Sender: FDA-Public Use
  Company Number: EG-SUN PHARMACEUTICAL INDUSTRIES LTD-2015R1-94494

PATIENT
  Age: 9 Year
  Sex: Female

DRUGS (1)
  1. KENACORT-A [Suspect]
     Active Substance: TRIAMCINOLONE
     Indication: BONE GIANT CELL TUMOUR
     Dosage: 1 DF, 2/WEEK
     Route: 026

REACTIONS (1)
  - Cushingoid [Recovering/Resolving]
